FAERS Safety Report 7721974-7 (Version None)
Quarter: 2011Q3

REPORT INFORMATION
  Report Type: 
  Country: None (occurrence: None)
  Receive Date: 20110831
  Receipt Date: 20110822
  Transmission Date: 20111222
  Serious: Yes (Hospitalization)
  Sender: FDA-Public Use
  Company Number: US-PURDUE-USA-2011-0073962

PATIENT
  Sex: Male

DRUGS (4)
  1. PROZAC [Concomitant]
     Indication: MENTAL DISORDER
     Dosage: 20 MG, DAILY
     Route: 048
  2. BUTRANS [Suspect]
     Indication: PAIN
     Dosage: 10 MCG/HR, UNK
     Route: 062
     Dates: start: 20110720
  3. TRAZODONE HYDROCHLORIDE [Concomitant]
     Indication: MENTAL DISORDER
     Dosage: 100 MG, DAILY
     Route: 048
  4. BUTRANS [Suspect]
     Dosage: 5 MCG/HR, UNK
     Route: 062
     Dates: start: 20110720

REACTIONS (4)
  - HEADACHE [None]
  - MENTAL DISORDER [None]
  - HYPOAESTHESIA [None]
  - PARAESTHESIA [None]
